FAERS Safety Report 7395578-2 (Version None)
Quarter: 2011Q2

REPORT INFORMATION
  Report Type: 
  Country: None (occurrence: None)
  Receive Date: 20110405
  Receipt Date: 20110331
  Transmission Date: 20111010
  Serious: Yes (Death)
  Sender: FDA-Public Use
  Company Number: PHHY2011US24428

PATIENT
  Sex: Male
  Weight: 83 kg

DRUGS (1)
  1. EXJADE [Suspect]
     Indication: IRON METABOLISM DISORDER
     Dosage: 2000 MG, QD
     Route: 048
     Dates: start: 20100519, end: 20100601

REACTIONS (1)
  - CEREBROVASCULAR ACCIDENT [None]
